FAERS Safety Report 6119231-8 (Version None)
Quarter: 2009Q1

REPORT INFORMATION
  Report Type: 
  Country: None (occurrence: None)
  Receive Date: 20090316
  Receipt Date: 20090304
  Transmission Date: 20090719
  Serious: Yes (Other)
  Sender: FDA-Public Use
  Company Number: US-ROCHE-618638

PATIENT
  Sex: Female
  Weight: 71.7 kg

DRUGS (6)
  1. BONIVA [Suspect]
     Indication: OSTEOPOROSIS
     Route: 048
     Dates: start: 20080101, end: 20090309
  2. SYNTHROID [Concomitant]
     Indication: HYPOTHYROIDISM
     Dosage: TAKEN EVERY AM
     Route: 048
  3. NORVASC [Concomitant]
     Indication: HYPERTENSION
     Dosage: TAKEN EVERY PM
     Route: 048
  4. DYRENIUM [Concomitant]
     Dosage: TAKEN EVERY AM
     Route: 048
  5. NEXIUM [Concomitant]
     Route: 048
  6. DIOVAN [Concomitant]
     Indication: HYPERTENSION
     Dosage: TAKEN EVERY PM
     Route: 048

REACTIONS (1)
  - OSTEONECROSIS [None]
